FAERS Safety Report 10166909 (Version 1)
Quarter: 2014Q2

REPORT INFORMATION
  Report Type: Spontaneous
  Country: US (occurrence: US)
  Receive Date: 20140512
  Receipt Date: 20140512
  Transmission Date: 20141212
  Serious: No
  Sender: FDA-Public Use
  Company Number: US-PFIZER INC-2014127520

PATIENT
  Age: 71 Year
  Sex: Male

DRUGS (1)
  1. SUTENT [Suspect]
     Indication: RENAL CANCER
     Dosage: 25 MG, DAILY 4 WEKS ON 2 WEEKS OFF)
     Route: 048
     Dates: start: 20140402, end: 20140507

REACTIONS (3)
  - Asthenia [Unknown]
  - Fatigue [Unknown]
  - Flatulence [Unknown]
